FAERS Safety Report 7215162-0 (Version None)
Quarter: 2011Q1

REPORT INFORMATION
  Report Type: 
  Country: None (occurrence: None)
  Receive Date: 20110107
  Receipt Date: 20101118
  Transmission Date: 20110831
  Serious: No
  Sender: FDA-Public Use
  Company Number: A0883213A

PATIENT
  Age: 60 Year
  Sex: Female

DRUGS (14)
  1. GABAPENTIN [Concomitant]
  2. VITAMIN B-12 [Concomitant]
  3. NEXIUM [Concomitant]
  4. CRESTOR [Concomitant]
  5. DICYCLOMINE [Concomitant]
  6. SAVELLA [Concomitant]
  7. VITAMIN D3 [Concomitant]
  8. PROPRANOLOL [Concomitant]
  9. LOVAZA [Suspect]
     Dosage: 1CAP TWICE PER DAY
     Route: 048
     Dates: start: 20090101
  10. METAMUCIL-2 [Concomitant]
  11. SINGULAIR [Concomitant]
  12. METFORMIN [Concomitant]
  13. AMITRIPTYLINE [Concomitant]
  14. UNKNOWN MEDICATION [Concomitant]

REACTIONS (1)
  - MEDICATION RESIDUE [None]
